FAERS Safety Report 15127775 (Version 1)
Quarter: 2018Q3

REPORT INFORMATION
  Report Type: Report from Study
  Country: US (occurrence: US)
  Receive Date: 20180710
  Receipt Date: 20180710
  Transmission Date: 20181010
  Serious: Yes (Hospitalization, Other)
  Sender: FDA-Public Use
  Company Number: US-SHIRE-US201824261

PATIENT
  Sex: Female
  Weight: 57.59 kg

DRUGS (1)
  1. GATTEX [Suspect]
     Active Substance: TEDUGLUTIDE\WATER
     Indication: SHORT-BOWEL SYNDROME
     Dosage: 0.288 ML, 1X/DAY:QD
     Route: 058
     Dates: start: 201806

REACTIONS (2)
  - Device related infection [Unknown]
  - Complication associated with device [Unknown]
